FAERS Safety Report 6485263-3 (Version None)
Quarter: 2009Q4

REPORT INFORMATION
  Report Type: 
  Country: None (occurrence: None)
  Receive Date: 20091209
  Receipt Date: 20091201
  Transmission Date: 20100525
  Serious: Yes (Death, Other)
  Sender: FDA-Public Use
  Company Number: TW-MERCK-0911TWN00013

PATIENT
  Age: 76 Year
  Sex: Male

DRUGS (1)
  1. INVANZ [Suspect]
     Indication: PNEUMONIA ASPIRATION
     Route: 041
     Dates: start: 20091118, end: 20091118

REACTIONS (5)
  - DEATH [None]
  - HEPATIC FUNCTION ABNORMAL [None]
  - RENAL IMPAIRMENT [None]
  - STEVENS-JOHNSON SYNDROME [None]
  - WHITE BLOOD CELL COUNT DECREASED [None]
